FAERS Safety Report 6921381-0 (Version None)
Quarter: 2010Q3

REPORT INFORMATION
  Report Type: 
  Country: None (occurrence: None)
  Receive Date: 20100812
  Receipt Date: 20100729
  Transmission Date: 20110219
  Serious: Yes (Other)
  Sender: FDA-Public Use
  Company Number: PHHY2010US50633

PATIENT
  Age: 45 Year
  Sex: Female

DRUGS (2)
  1. RECLAST [Suspect]
     Indication: OSTEOPOROSIS
     Dosage: 5 MG PER 100 ML ONCE A YEAR
     Route: 042
  2. STEROIDS NOS [Concomitant]
     Indication: COELIAC DISEASE

REACTIONS (3)
  - INFLUENZA LIKE ILLNESS [None]
  - LEUKOPENIA [None]
  - MYALGIA [None]
